FAERS Safety Report 4962923-4 (Version None)
Quarter: 2006Q1

REPORT INFORMATION
  Report Type: 
  Country: None (occurrence: None)
  Receive Date: 20060331
  Receipt Date: 20060314
  Transmission Date: 20060701
  Serious: Yes (Death, Other)
  Sender: FDA-Public Use
  Company Number: US200603003594

PATIENT
  Age: 73 Year
  Sex: Male

DRUGS (3)
  1. HUMULIN 70/30 [Suspect]
  2. HUMULIN R [Suspect]
  3. HUMULIN N [Suspect]

REACTIONS (1)
  - RENAL FAILURE [None]
